FAERS Safety Report 7229633-4 (Version None)
Quarter: 2011Q1

REPORT INFORMATION
  Report Type: 
  Country: None (occurrence: None)
  Receive Date: 20110117
  Receipt Date: 20110104
  Transmission Date: 20110831
  Serious: Yes (Disabling, Other)
  Sender: FDA-Public Use
  Company Number: PHHY2010US83878

PATIENT
  Sex: Female
  Weight: 46 kg

DRUGS (6)
  1. LISINOPRIL [Concomitant]
     Indication: HYPERTENSION
     Dosage: UNK
     Route: 048
  2. MOBIC [Suspect]
  3. CLIMARA [Concomitant]
     Indication: MENOPAUSE
     Dosage: WEEKLY APPLICATION
  4. TYLENOL [Suspect]
     Dosage: PRN
  5. RECLAST [Suspect]
     Indication: OSTEOPOROSIS
     Dosage: 5 MG, UNK
     Route: 017
     Dates: start: 20101130
  6. ACIPHEX [Concomitant]
     Indication: GASTROOESOPHAGEAL REFLUX DISEASE
     Dosage: 20 MG, UNK

REACTIONS (14)
  - HIGH DENSITY LIPOPROTEIN DECREASED [None]
  - ARTHRALGIA [None]
  - FATIGUE [None]
  - INFLUENZA LIKE ILLNESS [None]
  - SOMNOLENCE [None]
  - MYALGIA [None]
  - BLOOD GLUCOSE INCREASED [None]
  - DYSSTASIA [None]
  - HYPOKINESIA [None]
  - BLOOD TRIGLYCERIDES INCREASED [None]
  - NEUROPATHY PERIPHERAL [None]
  - IMPAIRED WORK ABILITY [None]
  - BURNING SENSATION [None]
  - PAIN [None]
